FAERS Safety Report 6575707-0 (Version None)
Quarter: 2010Q1

REPORT INFORMATION
  Report Type: 
  Country: None (occurrence: None)
  Receive Date: 20100209
  Receipt Date: 20100202
  Transmission Date: 20100710
  Serious: Yes (Hospitalization)
  Sender: FDA-Public Use
  Company Number: FR-BRISTOL-MYERS SQUIBB COMPANY-14963599

PATIENT
  Age: 37 Year
  Sex: Male

DRUGS (12)
  1. APROVEL TABS 75 MG [Suspect]
     Route: 048
     Dates: start: 20040101
  2. VASTEN [Suspect]
     Route: 048
  3. NEORAL [Suspect]
     Route: 048
  4. CELLCEPT [Suspect]
     Route: 048
     Dates: start: 20040101
  5. TENORMIN [Suspect]
     Route: 048
  6. SOLUPRED [Suspect]
     Route: 048
     Dates: start: 20040101
  7. AMLOR [Suspect]
     Dosage: CAPSULE
     Route: 048
  8. MIRCERA [Suspect]
     Route: 058
  9. DEDROGYL [Suspect]
     Route: 048
  10. TARDYFERON [Suspect]
     Route: 048
  11. SODIUM BICARBONATE [Suspect]
  12. EZETROL [Suspect]
     Route: 048

REACTIONS (2)
  - HALLUCINATION, AUDITORY [None]
  - MEMORY IMPAIRMENT [None]
